FAERS Safety Report 18123442 (Version 1)
Quarter: 2020Q3

REPORT INFORMATION
  Report Type: Report from Study
  Country: JP (occurrence: JP)
  Receive Date: 20200807
  Receipt Date: 20200807
  Transmission Date: 20201103
  Serious: Yes (Hospitalization, Other)
  Sender: FDA-Public Use
  Company Number: JP-GLAXOSMITHKLINE-JP2020JPN098336

PATIENT
  Age: 69 Year
  Sex: Male
  Weight: 70 kg

DRUGS (4)
  1. NEORAL [Concomitant]
     Active Substance: CYCLOSPORINE
     Dosage: 100 MG
     Dates: start: 20090423, end: 202007
  2. PREDNISOLONE. [Concomitant]
     Active Substance: PREDNISOLONE
     Indication: EOSINOPHILIC GRANULOMATOSIS WITH POLYANGIITIS
     Dosage: 5 MG, AT NORMAL TIME
     Dates: start: 20080608
  3. MEPOLIZUMAB [Suspect]
     Active Substance: MEPOLIZUMAB
     Indication: EOSINOPHILIC GRANULOMATOSIS WITH POLYANGIITIS
     Dosage: 300 MG
     Route: 058
     Dates: start: 20180910
  4. PREDNISOLONE. [Concomitant]
     Active Substance: PREDNISOLONE
     Dosage: 10 MG
     Dates: end: 202007

REACTIONS (7)
  - Pyelonephritis [Recovered/Resolved]
  - Blood pressure decreased [Unknown]
  - Ischaemic stroke [Recovered/Resolved with Sequelae]
  - Hemiparesis [Unknown]
  - Pyrexia [Unknown]
  - Urinary tract infection [Recovering/Resolving]
  - Somnolence [Unknown]

NARRATIVE: CASE EVENT DATE: 2020
